FAERS Safety Report 12491383 (Version 1)
Quarter: 2016Q2

REPORT INFORMATION
  Report Type: Spontaneous
  Country: US (occurrence: None)
  Receive Date: 20160622
  Receipt Date: 20160622
  Transmission Date: 20160815
  Serious: Yes (Hospitalization, Disabling)
  Sender: FDA-Public Use
  Company Number: None

PATIENT
  Age: 34 Year
  Sex: Male
  Weight: 110.22 kg

DRUGS (1)
  1. CIPROFLOXACIN. [Suspect]
     Active Substance: CIPROFLOXACIN
     Indication: PROSTATITIS
     Dates: start: 20130904, end: 20130907

REACTIONS (3)
  - Paraesthesia [None]
  - Hypoaesthesia [None]
  - Neuropathy peripheral [None]

NARRATIVE: CASE EVENT DATE: 20130909
